FAERS Safety Report 25106870 (Version 3)
Quarter: 2025Q2

REPORT INFORMATION
  Report Type: Spontaneous
  Country: US (occurrence: None)
  Receive Date: 20250321
  Receipt Date: 20250411
  Transmission Date: 20250716
  Serious: Yes (Hospitalization, Other)
  Sender: INCYTE
  Company Number: US-INCYTE CORPORATION-2025IN003016

PATIENT
  Age: 84 Year
  Weight: 73.923 kg

DRUGS (9)
  1. JAKAFI [Suspect]
     Active Substance: RUXOLITINIB
     Indication: Myelofibrosis
     Dosage: 75 MILLIGRAM, BID
  2. PELABRESIB [Suspect]
     Active Substance: PELABRESIB
     Indication: Myelofibrosis
     Dosage: 75 MILLIGRAM, BID
  3. TIMOLOL MALEATE [Concomitant]
     Active Substance: TIMOLOL MALEATE
     Indication: Eye disorder
  4. TIMOLOL MALEATE [Concomitant]
     Active Substance: TIMOLOL MALEATE
     Indication: Influenza like illness
  5. SYNTHROID [Concomitant]
     Active Substance: LEVOTHYROXINE SODIUM
     Indication: Hypothyroidism
     Dosage: 100 MILLIGRAM, QD
  6. DESYREL [Concomitant]
     Active Substance: TRAZODONE HYDROCHLORIDE
     Indication: Depression
  7. PLAVIX [Concomitant]
     Active Substance: CLOPIDOGREL BISULFATE
     Indication: Platelet disorder
     Dosage: 75 MILLIGRAM, QD
  8. CRESTOR [Concomitant]
     Active Substance: ROSUVASTATIN CALCIUM
     Indication: Blood cholesterol
     Dosage: 10 MILLIGRAM, QD
  9. ALBUTEROL SULFATE [Concomitant]
     Active Substance: ALBUTEROL SULFATE
     Indication: Cough
     Dosage: 90 MICROGRAM, QID

REACTIONS (12)
  - Sepsis [Not Recovered/Not Resolved]
  - Blast cell count increased [Unknown]
  - Immunodeficiency [Unknown]
  - Septic shock [Unknown]
  - Myelofibrosis [Not Recovered/Not Resolved]
  - Disease progression [Not Recovered/Not Resolved]
  - Fatigue [Unknown]
  - Normocytic anaemia [Unknown]
  - Hyponatraemia [Unknown]
  - C-reactive protein increased [Unknown]
  - Sinus tachycardia [Unknown]
  - Platelet count decreased [Unknown]
